FAERS Safety Report 4614173-9 (Version None)
Quarter: 2005Q1

REPORT INFORMATION
  Report Type: 
  Country: None (occurrence: None)
  Receive Date: 20050315
  Receipt Date: 20050224
  Transmission Date: 20050727
  Serious: Yes (Disabling)
  Sender: FDA-Public Use
  Company Number: WAES 0212USA00093

PATIENT
  Age: 55 Year
  Sex: Male

DRUGS (5)
  1. COZAAR [Suspect]
     Indication: HYPERTENSION
     Dosage: 25 MG DAILY; PO
     Route: 048
     Dates: start: 20020221
  2. ADALAT [Concomitant]
  3. CALTAN [Concomitant]
  4. CARDENALIN [Concomitant]
  5. ZYLORIC [Concomitant]

REACTIONS (5)
  - AZOTAEMIA [None]
  - DISEASE PROGRESSION [None]
  - HAEMODIALYSIS [None]
  - HYPERKALAEMIA [None]
  - RENAL FAILURE CHRONIC [None]
